FAERS Safety Report 4919284-6 (Version None)
Quarter: 2006Q1

REPORT INFORMATION
  Report Type: 
  Country: None (occurrence: None)
  Receive Date: 20060215
  Receipt Date: 20060201
  Transmission Date: 20060701
  Serious: Yes (Death)
  Sender: FDA-Public Use
  Company Number: 06-NIP00006

PATIENT

DRUGS (1)
  1. NIPENT [Suspect]

REACTIONS (2)
  - CHRONIC LYMPHOCYTIC LEUKAEMIA [None]
  - HEPATIC FAILURE [None]
